FAERS Safety Report 7367199-9 (Version None)
Quarter: 2011Q1

REPORT INFORMATION
  Report Type: 
  Country: None (occurrence: None)
  Receive Date: 20110322
  Receipt Date: 20110311
  Transmission Date: 20110831
  Serious: Yes (Other)
  Sender: FDA-Public Use
  Company Number: GB-JNJFOC-20110307073

PATIENT
  Sex: Female

DRUGS (1)
  1. NICORETTE ORIGINAL GUM [Suspect]
     Indication: SMOKING CESSATION THERAPY
     Dosage: TEN PIECES PER DAY
     Route: 048

REACTIONS (2)
  - DEPENDENCE [None]
  - INCORRECT DRUG ADMINISTRATION DURATION [None]
